FAERS Safety Report 4383812-2 (Version None)
Quarter: 2004Q2

REPORT INFORMATION
  Report Type: 
  Country: None (occurrence: None)
  Receive Date: 20040608
  Receipt Date: 20031010
  Transmission Date: 20050107
  Serious: Yes (Other)
  Sender: FDA-Public Use
  Company Number: 200313729BCC

PATIENT
  Age: 64 Year
  Sex: Male
  Weight: 78.0187 kg

DRUGS (10)
  1. ALEVE [Suspect]
     Indication: MUSCLE STRAIN
     Dosage: 220 MG, QD, ORAL
     Route: 048
     Dates: start: 20030901
  2. ALEVE [Suspect]
     Indication: MYALGIA
     Dosage: 220 MG, QD, ORAL
     Route: 048
     Dates: start: 20030901
  3. PAXIL [Concomitant]
  4. ZANTAC [Concomitant]
  5. XANAX [Concomitant]
  6. VITAMIN E [Concomitant]
  7. VITAMIN B-12 [Concomitant]
  8. NIACIN [Concomitant]
  9. B-COMPLEX VITAMINS [Concomitant]
  10. FISH OIL [Concomitant]

REACTIONS (2)
  - LEUKOPENIA [None]
  - WHITE BLOOD CELL COUNT ABNORMAL [None]
